FAERS Safety Report 9742722 (Version 2)
Quarter: 2015Q3

REPORT INFORMATION
  Report Type: Spontaneous
  Country: US (occurrence: US)
  Receive Date: 20131210
  Receipt Date: 20150805
  Transmission Date: 20151125
  Serious: No
  Sender: FDA-Public Use
  Company Number: US-GILEAD-2009-0025807

PATIENT
  Age: 67 Year
  Sex: Male
  Weight: 72.7 kg

DRUGS (14)
  1. LETAIRIS [Suspect]
     Active Substance: AMBRISENTAN
     Indication: PULMONARY ARTERIAL HYPERTENSION
     Route: 048
     Dates: start: 20090909
  2. VITAMIN-E [Concomitant]
  3. PLAVIX [Concomitant]
     Active Substance: CLOPIDOGREL BISULFATE
  4. SELENIUM [Concomitant]
     Active Substance: SELENIUM
  5. METOLAZONE. [Concomitant]
     Active Substance: METOLAZONE
  6. ASA [Concomitant]
     Active Substance: ASPIRIN
  7. GARLIC CAP [Concomitant]
  8. LASIX [Concomitant]
     Active Substance: FUROSEMIDE
  9. GLIMEPIRIDE. [Concomitant]
     Active Substance: GLIMEPIRIDE
  10. ACTOMED PLUS [Concomitant]
  11. FISH OIL [Concomitant]
     Active Substance: FISH OIL
  12. VITAMIN B COMPLEX [Concomitant]
     Active Substance: CYANOCOBALAMIN\DEXPANTHENOL\NIACINAMIDE\PYRIDOXINE HYDROCHLORIDE\RIBOFLAVIN 5^-PHOSPHATE SODIUM\THIAMINE HYDROCHLORIDE\VITAMIN B COMPLEX
  13. POTASSIUM [Concomitant]
     Active Substance: POTASSIUM
  14. VITAMIN D3 [Concomitant]
     Active Substance: CHOLECALCIFEROL

REACTIONS (1)
  - Generalised oedema [Not Recovered/Not Resolved]

NARRATIVE: CASE EVENT DATE: 20091008
